FAERS Safety Report 7558947-3 (Version None)
Quarter: 2011Q2

REPORT INFORMATION
  Report Type: 
  Country: None (occurrence: None)
  Receive Date: 20110621
  Receipt Date: 20110616
  Transmission Date: 20111010
  Serious: Yes (Death, Other)
  Sender: FDA-Public Use
  Company Number: AT-ASTELLAS-2011US002386

PATIENT
  Age: 39 Year
  Sex: Male

DRUGS (2)
  1. AMBISOME [Suspect]
     Indication: ZYGOMYCOSIS
  2. AMBISOME [Suspect]
     Indication: PERITONITIS
     Dosage: UNK
     Route: 042

REACTIONS (5)
  - LACTIC ACIDOSIS [None]
  - CARDIAC ARREST [None]
  - MULTI-ORGAN DISORDER [None]
  - SEPTIC SHOCK [None]
  - HYPERKALAEMIA [None]
